FAERS Safety Report 16849856 (Version 1)
Quarter: 2019Q3

REPORT INFORMATION
  Report Type: Spontaneous
  Country: US (occurrence: US)
  Receive Date: 20190802
  Receipt Date: 20190802
  Transmission Date: 20191005
  Serious: Yes (Hospitalization)
  Sender: FDA-Public Use
  Company Number: None

PATIENT
  Age: 70 Year
  Sex: Male
  Weight: 70.4 kg

DRUGS (4)
  1. XELODA [Suspect]
     Active Substance: CAPECITABINE
     Dates: end: 20190726
  2. LEUCOVORIN CALCIUM. [Suspect]
     Active Substance: LEUCOVORIN CALCIUM
     Dates: end: 20190607
  3. ELOXATIN [Suspect]
     Active Substance: OXALIPLATIN
     Dates: end: 20190607
  4. 5-FLUOROURACIL (5-FU) [Suspect]
     Active Substance: FLUOROURACIL
     Dates: end: 20190609

REACTIONS (9)
  - Feeling cold [None]
  - Skin disorder [None]
  - Dehydration [None]
  - Lip dry [None]
  - Dysuria [None]
  - Abdominal pain [None]
  - Paraesthesia [None]
  - Diarrhoea [None]
  - Balance disorder [None]

NARRATIVE: CASE EVENT DATE: 20190727
